FAERS Safety Report 16934277 (Version 1)
Quarter: 2019Q4

REPORT INFORMATION
  Report Type: Spontaneous
  Country: JP (occurrence: JP)
  Receive Date: 20191018
  Receipt Date: 20191018
  Transmission Date: 20200122
  Serious: Yes (Hospitalization)
  Sender: FDA-Public Use
  Company Number: JP-TEVA-2019-JP-1125237

PATIENT
  Age: 66 Year
  Sex: Male

DRUGS (11)
  1. UFT [Suspect]
     Active Substance: TEGAFUR\URACIL
     Indication: ADENOCARCINOMA OF COLON
  2. LEUCOVORIN. [Suspect]
     Active Substance: LEUCOVORIN
     Indication: ADJUVANT THERAPY
     Dosage: 75 MILLIGRAM DAILY;
     Route: 065
  3. UFT [Suspect]
     Active Substance: TEGAFUR\URACIL
     Indication: ADENOCARCINOMA OF COLON
  4. IMATINIB. [Suspect]
     Active Substance: IMATINIB MESYLATE
     Indication: CHRONIC MYELOID LEUKAEMIA
     Dosage: INITIAL DOSE
     Route: 065
  5. IMATINIB. [Suspect]
     Active Substance: IMATINIB MESYLATE
     Dosage: ADJUSTED DOSE
     Route: 065
  6. TRICHLORMETHIAZIDE [Concomitant]
     Active Substance: TRICHLORMETHIAZIDE
     Route: 065
  7. LEUCOVORIN. [Suspect]
     Active Substance: LEUCOVORIN
     Indication: ADENOCARCINOMA OF COLON
  8. LEUCOVORIN. [Suspect]
     Active Substance: LEUCOVORIN
     Indication: ADENOCARCINOMA OF COLON
  9. UFT [Suspect]
     Active Substance: TEGAFUR\URACIL
     Indication: ADJUVANT THERAPY
     Dosage: 500 MILLIGRAM DAILY;
     Route: 065
  10. IRBESARTAN. [Concomitant]
     Active Substance: IRBESARTAN
     Route: 065
  11. FEBUXOSTAT. [Concomitant]
     Active Substance: FEBUXOSTAT
     Route: 065

REACTIONS (2)
  - Adenocarcinoma of colon [Recovered/Resolved]
  - Nausea [Unknown]
